FAERS Safety Report 8269825-9 (Version None)
Quarter: 2012Q2

REPORT INFORMATION
  Report Type: 
  Country: None (occurrence: None)
  Receive Date: 20120406
  Receipt Date: 20120322
  Transmission Date: 20120825
  Serious: Yes (Death, Other)
  Sender: FDA-Public Use
  Company Number: 2012SGN00002

PATIENT
  Sex: Male

DRUGS (1)
  1. ADCETRIS [Suspect]
     Indication: HODGKIN'S DISEASE
     Dates: start: 20111130, end: 20111130

REACTIONS (15)
  - CONFUSIONAL STATE [None]
  - COUGH [None]
  - DECREASED APPETITE [None]
  - VOMITING [None]
  - BLOOD CREATININE INCREASED [None]
  - ANXIETY [None]
  - URINARY INCONTINENCE [None]
  - FAECAL INCONTINENCE [None]
  - PALLOR [None]
  - DYSSTASIA [None]
  - COORDINATION ABNORMAL [None]
  - OROPHARYNGEAL PAIN [None]
  - GENERAL PHYSICAL HEALTH DETERIORATION [None]
  - ABDOMINAL DISTENSION [None]
  - FATIGUE [None]
